FAERS Safety Report 19251725 (Version 1)
Quarter: 2021Q2

REPORT INFORMATION
  Report Type: Spontaneous
  Country: FI (occurrence: FI)
  Receive Date: 20210512
  Receipt Date: 20210512
  Transmission Date: 20210717
  Serious: Yes (Other)
  Sender: FDA-Public Use
  Company Number: FI-ANIPHARMA-2021-FI-000003

PATIENT
  Age: 38 Year
  Sex: Female

DRUGS (3)
  1. ATACAND [Suspect]
     Active Substance: CANDESARTAN CILEXETIL
     Indication: MIGRAINE PROPHYLAXIS
     Dosage: UNKNOWN DOSE AND FREQUENCY
     Route: 048
     Dates: start: 20210201, end: 20210216
  2. SERTRALINE [Concomitant]
     Active Substance: SERTRALINE HYDROCHLORIDE
     Dosage: 75 MG DAILY
     Route: 048
     Dates: start: 2019
  3. KLOTRIPTYL [Concomitant]
     Dosage: UNKNOWN DOSE DIALY
     Route: 048
     Dates: start: 202005

REACTIONS (4)
  - Off label use [Recovered/Resolved]
  - Face oedema [Unknown]
  - Oedema peripheral [Unknown]
  - Angioedema [Unknown]

NARRATIVE: CASE EVENT DATE: 20210201
